FAERS Safety Report 8199838-7 (Version None)
Quarter: 2012Q1

REPORT INFORMATION
  Report Type: 
  Country: None (occurrence: None)
  Receive Date: 20120312
  Receipt Date: 20120303
  Transmission Date: 20120608
  Serious: Yes (Hospitalization)
  Sender: FDA-Public Use
  Company Number: US-BIOGENIDEC-2011BI019625

PATIENT
  Age: 23 Year
  Sex: Male
  Weight: 92 kg

DRUGS (17)
  1. CLONIDINE [Concomitant]
     Route: 048
  2. TYSABRI [Suspect]
     Indication: MULTIPLE SCLEROSIS
     Route: 042
     Dates: start: 20071112, end: 20110511
  3. KEPPRA XR [Concomitant]
     Indication: LARYNGOSPASM
     Route: 048
     Dates: start: 20110503
  4. AMLODIPINE [Concomitant]
     Indication: HYPERTENSION
     Route: 048
  5. CANDESARTAN CILEXETIL [Concomitant]
     Indication: HYPERTENSION
     Route: 048
  6. GUANFACINE HYDROCHLORIDE [Concomitant]
     Route: 048
  7. GABAPENTIN [Concomitant]
     Indication: LARYNGOSPASM
     Route: 048
  8. GABAPENTIN [Concomitant]
     Route: 048
     Dates: end: 20110501
  9. DILAUDID [Concomitant]
     Indication: PAIN
     Route: 048
  10. LABETALOL HCL [Concomitant]
     Indication: HYPERTENSION
     Route: 048
  11. CHOLECALCIFEROL [Concomitant]
     Route: 048
  12. GABAPENTIN [Concomitant]
     Route: 048
     Dates: end: 20110501
  13. KEPPRA XR [Concomitant]
     Indication: TREMOR
     Route: 048
     Dates: start: 20110503
  14. DIAZEPAM [Concomitant]
     Indication: LARYNGOSPASM
     Route: 048
  15. GABAPENTIN [Concomitant]
     Indication: HICCUPS
     Route: 048
  16. EPLERENONE [Concomitant]
     Route: 048
  17. MINOXIDIL [Concomitant]
     Indication: HYPERTENSION
     Route: 048

REACTIONS (1)
  - PROGRESSIVE MULTIFOCAL LEUKOENCEPHALOPATHY [None]
